FAERS Safety Report 25529224 (Version 1)
Quarter: 2025Q3

REPORT INFORMATION
  Report Type: Spontaneous
  Country: US (occurrence: US)
  Receive Date: 20250708
  Receipt Date: 20250708
  Transmission Date: 20251020
  Serious: No
  Sender: CSL BEHRING
  Company Number: US-BEH-2025211016

PATIENT
  Age: 27 Year
  Sex: Female

DRUGS (6)
  1. HIZENTRA [Suspect]
     Active Substance: HUMAN IMMUNOGLOBULIN G
     Indication: Product used for unknown indication
     Route: 065
  2. DUPIXENT [Suspect]
     Active Substance: DUPILUMAB
     Indication: Psoriasis
     Dosage: 300 MG, QOW
     Route: 058
     Dates: start: 202307
  3. Freedom [Concomitant]
  4. EPINEPHRINE [Concomitant]
     Active Substance: EPINEPHRINE
  5. ACETAMINOPHEN [Concomitant]
     Active Substance: ACETAMINOPHEN
  6. Citrazine [Concomitant]

REACTIONS (5)
  - Pain [Unknown]
  - Pruritus [Unknown]
  - Swelling [Unknown]
  - Headache [Unknown]
  - Product use in unapproved indication [Unknown]
